FAERS Safety Report 6645043-2 (Version None)
Quarter: 2010Q1

REPORT INFORMATION
  Report Type: 
  Country: None (occurrence: None)
  Receive Date: 20100322
  Receipt Date: 20100318
  Transmission Date: 20100710
  Serious: Yes (Life-Threatening, Hospitalization, Other)
  Sender: FDA-Public Use
  Company Number: PHHY2010FI16195

PATIENT
  Sex: Female

DRUGS (8)
  1. LEPONEX [Suspect]
     Indication: SCHIZOPHRENIA
     Dosage: 200 MG, QD
     Dates: start: 20091215, end: 20100203
  2. ENALAPRIL MALEATE [Concomitant]
     Indication: BLOOD PRESSURE
     Dosage: 2.5 MG/DAY
  3. THYROXIN [Concomitant]
     Indication: THYROID DISORDER
     Dosage: 25 MCG/DAY
  4. SPIRESIS [Concomitant]
     Indication: BLOOD PRESSURE
     Dosage: 25 MG EVERY OTHER DAY AND 50 MG EVERY OTHER DAY
  5. DIFORMIN RETARD [Concomitant]
     Indication: DIABETES MELLITUS
     Dosage: 1 + 2 TABLETS/DAY
     Dates: start: 20070717
  6. PRIMASPAN [Concomitant]
     Indication: ANTICOAGULANT THERAPY
     Dosage: 100 MG/DAY
     Dates: start: 20070717
  7. LIPITOR [Concomitant]
     Indication: HYPERCHOLESTEROLAEMIA
     Dosage: 20 MG/DAY
     Dates: start: 20091218
  8. DEVITOL [Concomitant]
     Indication: PROPHYLAXIS
     Dosage: 5 DROPS/ DAY

REACTIONS (9)
  - CLOSTRIDIAL INFECTION [None]
  - NEUTROPHIL COUNT DECREASED [None]
  - PYREXIA [None]
  - SEPSIS [None]
  - SEPTIC EMBOLUS [None]
  - SKIN INJURY [None]
  - STAPHYLOCOCCAL INFECTION [None]
  - WHITE BLOOD CELL COUNT DECREASED [None]
  - WHITE BLOOD CELL DISORDER [None]
